FAERS Safety Report 16943164 (Version 1)
Quarter: 2019Q4

REPORT INFORMATION
  Report Type: Spontaneous
  Country: CN (occurrence: CN)
  Receive Date: 20191021
  Receipt Date: 20191021
  Transmission Date: 20200122
  Serious: Yes (Other)
  Sender: FDA-Public Use
  Company Number: CN-BAXTER-2019BAX020431

PATIENT
  Age: 51 Year
  Sex: Male
  Weight: 75 kg

DRUGS (14)
  1. FENGKESONG [Suspect]
     Active Substance: AMPHOTERICIN B
     Indication: MENINGITIS CRYPTOCOCCAL
     Dosage: AMPHOTERICIN B LIPOSOME FOR INJECTION + DEXAMETHASONE SODIUM PHOSPHATE INJECTION + GLUCOSE INJECTION
     Route: 041
     Dates: start: 20190831
  2. FENGKESONG [Suspect]
     Active Substance: AMPHOTERICIN B
     Dosage: AMPHOTERICIN B LIPOSOME FOR INJECTION + DEXAMETHASONE SODIUM PHOSPHATE INJECTION + GLUCOSE INJECTION
     Route: 041
     Dates: start: 20190902
  3. GLUCOSE [Suspect]
     Active Substance: DEXTROSE
     Indication: MEDICATION DILUTION
     Dosage: AMPHOTERICIN B LIPOSOME FOR INJECTION + DEXAMETHASONE SODIUM PHOSPHATE INJECTION + GLUCOSE INJECTION
     Route: 041
     Dates: start: 20190831
  4. DEXAMETHASONE SODIUM PHOSPHATE. [Suspect]
     Active Substance: DEXAMETHASONE SODIUM PHOSPHATE
     Indication: PROPHYLAXIS
     Dosage: AMPHOTERICIN B LIPOSOME FOR INJECTION + DEXAMETHASONE SODIUM PHOSPHATE INJECTION + GLUCOSE INJECTION
     Route: 041
     Dates: start: 20190831
  5. GLUCOSE [Suspect]
     Active Substance: DEXTROSE
     Dosage: AMPHOTERICIN B LIPOSOME FOR INJECTION + DEXAMETHASONE SODIUM PHOSPHATE INJECTION + GLUCOSE INJECTION
     Route: 041
     Dates: start: 20190901
  6. GLUCOSE [Suspect]
     Active Substance: DEXTROSE
     Dosage: AMPHOTERICIN B LIPOSOME FOR INJECTION + DEXAMETHASONE SODIUM PHOSPHATE INJECTION + GLUCOSE INJECTION
     Route: 041
     Dates: start: 20190902
  7. 20% MANNITOL INJECTION [Suspect]
     Active Substance: MANNITOL
     Indication: INTRACRANIAL PRESSURE INCREASED
     Route: 041
     Dates: start: 20190830, end: 20190908
  8. DEXAMETHASONE SODIUM PHOSPHATE. [Suspect]
     Active Substance: DEXAMETHASONE SODIUM PHOSPHATE
     Dosage: AMPHOTERICIN B LIPOSOME FOR INJECTION + DEXAMETHASONE SODIUM PHOSPHATE INJECTION + GLUCOSE INJECTION
     Route: 041
     Dates: start: 20190901
  9. FENGKESONG [Suspect]
     Active Substance: AMPHOTERICIN B
     Dosage: AMPHOTERICIN B LIPOSOME FOR INJECTION + DEXAMETHASONE SODIUM PHOSPHATE INJECTION + GLUCOSE INJECTION
     Route: 041
     Dates: start: 20190903, end: 20190911
  10. DEXAMETHASONE SODIUM PHOSPHATE. [Suspect]
     Active Substance: DEXAMETHASONE SODIUM PHOSPHATE
     Dosage: AMPHOTERICIN B LIPOSOME FOR INJECTION + DEXAMETHASONE SODIUM PHOSPHATE INJECTION + GLUCOSE INJECTION
     Route: 041
     Dates: start: 20190902
  11. 20% MANNITOL INJECTION [Suspect]
     Active Substance: MANNITOL
     Dosage: REDUCED FREQUENCY OF DOSAGE
     Route: 041
     Dates: start: 20190909
  12. FENGKESONG [Suspect]
     Active Substance: AMPHOTERICIN B
     Dosage: AMPHOTERICIN B LIPOSOME FOR INJECTION + DEXAMETHASONE SODIUM PHOSPHATE INJECTION + GLUCOSE INJECTION
     Route: 041
     Dates: start: 20190901
  13. DEXAMETHASONE SODIUM PHOSPHATE. [Suspect]
     Active Substance: DEXAMETHASONE SODIUM PHOSPHATE
     Dosage: AMPHOTERICIN B LIPOSOME FOR INJECTION + DEXAMETHASONE SODIUM PHOSPHATE INJECTION + GLUCOSE INJECTION
     Route: 041
     Dates: start: 20190903, end: 20190911
  14. GLUCOSE [Suspect]
     Active Substance: DEXTROSE
     Dosage: AMPHOTERICIN B LIPOSOME FOR INJECTION + DEXAMETHASONE SODIUM PHOSPHATE INJECTION + GLUCOSE INJECTION
     Route: 041
     Dates: start: 20190903, end: 20190911

REACTIONS (2)
  - Renal impairment [Recovering/Resolving]
  - Hepatic function abnormal [Recovering/Resolving]

NARRATIVE: CASE EVENT DATE: 20190909
